FAERS Safety Report 6672658-8 (Version None)
Quarter: 2010Q2

REPORT INFORMATION
  Report Type: 
  Country: None (occurrence: None)
  Receive Date: 20100408
  Receipt Date: 20100330
  Transmission Date: 20101027
  Serious: Yes (Other)
  Sender: FDA-Public Use
  Company Number: US-ROCHE-683927

PATIENT
  Age: 72 Year
  Sex: Female
  Weight: 59 kg

DRUGS (6)
  1. BONIVA [Suspect]
     Indication: OSTEOPOROSIS
     Route: 048
     Dates: start: 20100201
  2. VITAMIN C [Concomitant]
  3. FISH OIL [Concomitant]
  4. MULTI-VITAMIN [Concomitant]
  5. CALCIUM/VITAMIN D [Concomitant]
     Dosage: DRUG REPORTED AS OSCA CALCIUM/VITAMIN D
  6. KYO-DOPHILUS [Concomitant]

REACTIONS (2)
  - DIARRHOEA [None]
  - HYPOTHYROIDISM [None]
